FAERS Safety Report 6835757-3 (Version None)
Quarter: 2010Q3

REPORT INFORMATION
  Report Type: 
  Country: None (occurrence: None)
  Receive Date: 20100712
  Receipt Date: 20100712
  Transmission Date: 20110219
  Serious: Yes (Other)
  Sender: FDA-Public Use
  Company Number: None

PATIENT
  Sex: Female
  Weight: 62 kg

DRUGS (2)
  1. MYSOLINE [Suspect]
     Indication: MUSCLE SPASMS
     Dates: start: 20100705, end: 20100708
  2. PREDNISONE [Suspect]
     Indication: BACK PAIN
     Dosage: 1 TABLET QD PO
     Route: 048
     Dates: start: 20100708, end: 20100712

REACTIONS (3)
  - DRUG DISPENSING ERROR [None]
  - MEDICATION ERROR [None]
  - WRONG DRUG ADMINISTERED [None]
